FAERS Safety Report 20752176 (Version 1)
Quarter: 2022Q2

REPORT INFORMATION
  Report Type: Spontaneous
  Country: US (occurrence: US)
  Receive Date: 20220426
  Receipt Date: 20220426
  Transmission Date: 20220721
  Serious: No
  Sender: FDA-Public Use
  Company Number: US-NOVARTISTESTPH-NVSC2022US095343

PATIENT
  Sex: Female

DRUGS (2)
  1. CAPMATINIB [Suspect]
     Active Substance: CAPMATINIB
     Indication: Product used for unknown indication
     Dosage: 200 MG, BID
     Route: 048
  2. OSIMERTINIB [Suspect]
     Active Substance: OSIMERTINIB
     Indication: Product used for unknown indication
     Dosage: 40 MG
     Route: 065

REACTIONS (2)
  - Pneumonitis [Unknown]
  - Dyspnoea [Unknown]
